FAERS Safety Report 7304684-X (Version None)
Quarter: 2011Q1

REPORT INFORMATION
  Report Type: 
  Country: None (occurrence: None)
  Receive Date: 20110222
  Receipt Date: 20110208
  Transmission Date: 20110831
  Serious: Yes (Hospitalization, Other)
  Sender: FDA-Public Use
  Company Number: US-CELGENEUS-163-21880-10112314

PATIENT
  Sex: Male

DRUGS (19)
  1. FENTANYL [Concomitant]
     Indication: PAIN
     Route: 065
  2. MILK OF MAGNESIA TAB [Concomitant]
     Dosage: 30CC
     Route: 048
  3. PEPCID [Concomitant]
     Route: 048
  4. PROTONIX [Concomitant]
     Route: 048
  5. TYLENOL [Concomitant]
     Route: 048
  6. REVLIMID [Suspect]
     Indication: MULTIPLE MYELOMA
     Route: 048
     Dates: start: 20101001
  7. COLACE [Concomitant]
     Route: 048
  8. AREDIA [Concomitant]
     Route: 065
  9. ALBUTEROL SULFATE [Concomitant]
     Route: 055
  10. MULTI-VITAMINS [Concomitant]
     Route: 048
  11. THIAMIN HCL [Concomitant]
     Route: 048
  12. AREDIA [Concomitant]
     Route: 065
     Dates: start: 20101119
  13. AMBIEN [Concomitant]
     Route: 048
  14. ATROVENT [Concomitant]
     Dosage: 1
     Route: 045
  15. CATAPRES [Concomitant]
     Route: 048
  16. DEXAMETHASONE [Concomitant]
     Route: 048
     Dates: start: 20101011
  17. FOLIC ACID [Concomitant]
     Dosage: 1-2 CAPSULES
     Route: 048
  18. NICODERM [Concomitant]
     Route: 062
  19. NORVASC [Concomitant]
     Route: 048

REACTIONS (3)
  - HAEMOGLOBIN DECREASED [None]
  - HAEMATOCRIT DECREASED [None]
  - DRUG ADMINISTRATION ERROR [None]
